FAERS Safety Report 5506842-3 (Version None)
Quarter: 2007Q4

REPORT INFORMATION
  Report Type: 
  Country: None (occurrence: None)
  Receive Date: 20071105
  Receipt Date: 20071024
  Transmission Date: 20080405
  Serious: Yes (Hospitalization)
  Sender: FDA-Public Use
  Company Number: US-SANOFI-SYNTHELABO-F03200700202

PATIENT
  Sex: Male
  Weight: 111.4 kg

DRUGS (14)
  1. ACETYLSALICYLIC ACID SRT [Concomitant]
     Dosage: UNK
     Route: 065
     Dates: start: 20061031
  2. LISINOPRIL [Concomitant]
     Dosage: UNK
     Route: 048
  3. TOPROL-XL [Concomitant]
     Dosage: UNK
     Route: 048
  4. GEMFIBROZIL [Concomitant]
     Dosage: UNK
     Route: 048
  5. INTEGRILIN [Suspect]
     Indication: ACUTE MYOCARDIAL INFARCTION
     Route: 042
     Dates: start: 20061101, end: 20061101
  6. INTEGRILIN [Suspect]
     Route: 042
     Dates: start: 20061101, end: 20061101
  7. ENOXAPARIN SODIUM [Suspect]
     Indication: ACUTE MYOCARDIAL INFARCTION
     Route: 058
     Dates: start: 20061101
  8. PLAVIX [Suspect]
     Indication: ACUTE MYOCARDIAL INFARCTION
     Route: 048
     Dates: start: 20061101, end: 20061103
  9. PLAVIX [Suspect]
     Indication: ACUTE CORONARY SYNDROME
     Route: 048
     Dates: start: 20061101, end: 20061103
  10. PLAVIX [Suspect]
     Indication: CATHETERISATION CARDIAC
     Route: 048
     Dates: start: 20061101, end: 20061103
  11. METOPROLOL TARTRATE [Concomitant]
     Dosage: UNK
     Route: 048
     Dates: start: 20061101, end: 20061101
  12. FUROSEMIDE [Concomitant]
     Dosage: UNK
     Route: 065
  13. GLYCERYL TRINITRATE [Concomitant]
     Dosage: UNK
     Route: 065
     Dates: start: 20061031, end: 20061101
  14. RAMIPRIL [Concomitant]
     Dosage: UNK
     Route: 048
     Dates: start: 20061101, end: 20061101

REACTIONS (2)
  - POSTOPERATIVE WOUND INFECTION [None]
  - VASCULAR PSEUDOANEURYSM [None]
